FAERS Safety Report 7977054-9 (Version None)
Quarter: 2011Q4

REPORT INFORMATION
  Report Type: 
  Country: None (occurrence: None)
  Receive Date: 20111213
  Receipt Date: 20111110
  Transmission Date: 20120403
  Serious: No
  Sender: FDA-Public Use
  Company Number: US-AMGEN-USASP2011037240

PATIENT
  Age: 40 Year
  Sex: Female
  Weight: 97.506 kg

DRUGS (1)
  1. ENBREL [Suspect]
     Indication: PSORIASIS
     Dosage: 50 MG, QWK
     Route: 058
     Dates: start: 20070901

REACTIONS (5)
  - PANIC ATTACK [None]
  - FEELING HOT [None]
  - HEART RATE INCREASED [None]
  - SENSATION OF BLOOD FLOW [None]
  - PSORIASIS [None]
